FAERS Safety Report 9690443 (Version 2)
Quarter: 2014Q1

REPORT INFORMATION
  Report Type: Spontaneous
  Country: US (occurrence: US)
  Receive Date: 20131115
  Receipt Date: 20140122
  Transmission Date: 20141002
  Serious: Yes (Hospitalization, Other)
  Sender: FDA-Public Use
  Company Number: US-FRI-1000051234

PATIENT
  Age: 69 Year
  Sex: Male
  Weight: 78 kg

DRUGS (7)
  1. DALIRESP [Suspect]
     Indication: CHRONIC OBSTRUCTIVE PULMONARY DISEASE
     Dosage: 500 MCG
     Route: 048
     Dates: start: 201304, end: 20131121
  2. AMBIEN [Concomitant]
     Indication: INSOMNIA
     Dosage: 10 MG DAILY AS NEEDED
  3. COMBIVENT [Concomitant]
     Indication: CHRONIC OBSTRUCTIVE PULMONARY DISEASE
     Dosage: 18 MCG/103 MCG AS NEEDED
     Route: 055
  4. LISINOPRIL [Concomitant]
     Indication: HYPERTENSION
     Dosage: 10 MG
     Dates: end: 201312
  5. LISINOPRIL [Concomitant]
     Dosage: 20 MG
     Dates: start: 201312
  6. NASONEX [Concomitant]
     Dosage: 1 EACH NOSTRIL TWICE DAILY
     Route: 045
  7. ADVAIR [Concomitant]
     Dosage: 250 MCG/50 MCG 1 PUFF TWICE DAILY
     Route: 055

REACTIONS (15)
  - Aplastic anaemia [Not Recovered/Not Resolved]
  - Escherichia urinary tract infection [Recovered/Resolved]
  - Pneumonia pseudomonal [Recovered/Resolved]
  - Oesophageal candidiasis [Recovered/Resolved]
  - Thrombosis [Unknown]
  - Renal failure acute [Not Recovered/Not Resolved]
  - Oedema peripheral [Not Recovered/Not Resolved]
  - Tachycardia [Recovered/Resolved]
  - Chills [Recovered/Resolved]
  - Hypertension [Unknown]
  - Flushing [Recovered/Resolved]
  - Skin reaction [Not Recovered/Not Resolved]
  - Constipation [Unknown]
  - Oral herpes [Not Recovered/Not Resolved]
  - Tremor [Not Recovered/Not Resolved]
